FAERS Safety Report 13342039 (Version 1)
Quarter: 2017Q1

REPORT INFORMATION
  Report Type: Spontaneous
  Country: JP (occurrence: JP)
  Receive Date: 20170316
  Receipt Date: 20170316
  Transmission Date: 20170428
  Serious: Yes (Other)
  Sender: FDA-Public Use
  Company Number: JP-ASTRAZENECA-2017SE27324

PATIENT

DRUGS (2)
  1. SEROQUEL [Suspect]
     Active Substance: QUETIAPINE FUMARATE
     Dosage: UNKNOWN DOSE AND FREQUENCY
     Route: 048
  2. ALCOHOL. [Interacting]
     Active Substance: ALCOHOL

REACTIONS (2)
  - Alcohol interaction [Unknown]
  - Impaired driving ability [Unknown]
